FAERS Safety Report 5102385-X (Version None)
Quarter: 2006Q3

REPORT INFORMATION
  Report Type: 
  Country: None (occurrence: None)
  Receive Date: 20060907
  Receipt Date: 20060825
  Transmission Date: 20061208
  Serious: Yes (Death)
  Sender: FDA-Public Use
  Company Number: 008435

PATIENT
  Age: 64 Year
  Sex: Male

DRUGS (1)
  1. CLARAVIS [Suspect]
     Indication: PROSTATE CANCER
     Dosage: 10 MG, BID, ORAL
     Route: 048
     Dates: start: 20060101, end: 20060601

REACTIONS (1)
  - DEATH [None]
